FAERS Safety Report 9914657 (Version 1)
Quarter: 2014Q1

REPORT INFORMATION
  Report Type: Spontaneous
  Country: NZ (occurrence: NZ)
  Receive Date: 20140220
  Receipt Date: 20140220
  Transmission Date: 20141002
  Serious: Yes (Hospitalization, Other)
  Sender: FDA-Public Use
  Company Number: NZ-ELI_LILLY_AND_COMPANY-NZ201402004936

PATIENT
  Age: 71 Year
  Sex: Female

DRUGS (5)
  1. PROZAC [Suspect]
     Indication: DEPRESSION
     Dosage: 40 MG, QD
     Route: 048
     Dates: start: 20130128
  2. QUETIAPINE [Suspect]
     Indication: DEPRESSION
     Dosage: 50 MG, QD
     Route: 048
     Dates: start: 20130408
  3. ATORVASTATIN [Concomitant]
     Dosage: 80 MG, QD
     Route: 048
  4. FLUTICASONE [Concomitant]
     Indication: ASTHMA
     Dosage: 250 UG, QD
     Route: 055
  5. AMLODIPINE [Concomitant]
     Dosage: 5 MG, QD
     Route: 048

REACTIONS (1)
  - Glaucoma [Recovered/Resolved]
